FAERS Safety Report 20192727 (Version 1)
Quarter: 2021Q4

REPORT INFORMATION
  Report Type: Spontaneous
  Country: US (occurrence: US)
  Receive Date: 20211216
  Receipt Date: 20211216
  Transmission Date: 20220303
  Serious: No
  Sender: FDA-Public Use
  Company Number: US-APOTEX-2021AP045939

PATIENT
  Sex: Female

DRUGS (4)
  1. ALENDRONATE SODIUM [Suspect]
     Active Substance: ALENDRONATE SODIUM
     Indication: Osteoporosis
     Dosage: 70 MILLIGRAM, Q.WK.
     Route: 065
     Dates: end: 20210808
  2. GABAPENTIN [Suspect]
     Active Substance: GABAPENTIN
     Indication: Neuralgia
     Dosage: 100 MILLIGRAM, QD
     Route: 065
     Dates: start: 201902
  3. CENTRUM VITAMINTS [Concomitant]
     Indication: Bone disorder
     Dosage: UNK, QD
     Route: 065
  4. CALCIUM CITRATE [Concomitant]
     Active Substance: CALCIUM CITRATE
     Indication: Bone disorder
     Dosage: UNK, BID (ONCE IN THE MORNING AND ONCE LATER IN THE DAY)
     Route: 065

REACTIONS (3)
  - Muscle atrophy [Unknown]
  - Illness [Not Recovered/Not Resolved]
  - Myalgia [Not Recovered/Not Resolved]
